FAERS Safety Report 14989200 (Version 1)
Quarter: 2018Q2

REPORT INFORMATION
  Report Type: Other
  Country: US (occurrence: US)
  Receive Date: 20180608
  Receipt Date: 20180608
  Transmission Date: 20180711
  Serious: Yes (Death, Other)
  Sender: FDA-Public Use
  Company Number: US-ACTELION-A-CH2018-173113

PATIENT
  Age: 6 Year
  Sex: Female

DRUGS (13)
  1. BOSENTAN. [Suspect]
     Active Substance: BOSENTAN
     Indication: PULMONARY HYPERTENSION
     Route: 048
  2. AMLODIPINE [Concomitant]
     Active Substance: AMLODIPINE BESYLATE
     Indication: PULMONARY ARTERIAL HYPERTENSION
  3. REMODULIN [Concomitant]
     Active Substance: TREPROSTINIL
  4. COLCHICINE. [Concomitant]
     Active Substance: COLCHICINE
  5. ASPIRIN. [Concomitant]
     Active Substance: ASPIRIN
     Indication: ANTIPHOSPHOLIPID ANTIBODIES
  6. TOFACITINIB [Concomitant]
     Active Substance: TOFACITINIB
     Dosage: 2.5 MG, BID
     Route: 048
  7. OMEPRAZOLE. [Concomitant]
     Active Substance: OMEPRAZOLE
     Indication: PROPHYLAXIS
  8. CAPTOPRIL. [Concomitant]
     Active Substance: CAPTOPRIL
     Indication: PULMONARY ARTERIAL HYPERTENSION
  9. ASPIRIN. [Concomitant]
     Active Substance: ASPIRIN
     Indication: THROMBOSIS
  10. LASIX [Concomitant]
     Active Substance: FUROSEMIDE
     Indication: PULMONARY ARTERIAL HYPERTENSION
  11. MILRINONE [Concomitant]
     Active Substance: MILRINONE
     Indication: PULMONARY ARTERIAL HYPERTENSION
  12. CYCLOSPORINE. [Concomitant]
     Active Substance: CYCLOSPORINE
  13. SILDENAFIL. [Concomitant]
     Active Substance: SILDENAFIL
     Indication: PULMONARY ARTERIAL HYPERTENSION

REACTIONS (16)
  - Cataract [Unknown]
  - Sudden death [Fatal]
  - Growth failure [Unknown]
  - Arthritis [Recovering/Resolving]
  - Growth retardation [Unknown]
  - Toxicity to various agents [Unknown]
  - Rash [Recovering/Resolving]
  - Pain in extremity [Unknown]
  - Dermatitis exfoliative generalised [Unknown]
  - Pyrexia [Unknown]
  - Rash erythematous [Recovering/Resolving]
  - Therapy non-responder [Unknown]
  - Pulmonary hypertension [Unknown]
  - Periorbital oedema [Unknown]
  - Lipoatrophy [Unknown]
  - Lipodystrophy acquired [Unknown]
